FAERS Safety Report 8717310 (Version 2)
Quarter: 2012Q4

REPORT INFORMATION
  Report Type: Spontaneous
  Country: US (occurrence: None)
  Receive Date: 20120726
  Receipt Date: 20120910
  Transmission Date: 20130627
  Serious: Yes (Hospitalization)
  Sender: FDA-Public Use
  Company Number: UTC-021030

PATIENT
  Age: 76 Year
  Sex: Male
  Weight: 119.5 kg

DRUGS (2)
  1. TYVASO [Suspect]
     Indication: PRIMARY PULMONARY HYPERTENSION
     Dosage: (54 MCG, 4 IN 1 D)
     Route: 055
     Dates: start: 20120602, end: 201208
  2. ADCIRCA [Concomitant]

REACTIONS (10)
  - Oedema peripheral [None]
  - Pain in extremity [None]
  - Gout [None]
  - Dyspnoea [None]
  - Fatigue [None]
  - Laboratory test abnormal [None]
  - Condition aggravated [None]
  - Fluid retention [None]
  - Renal failure [None]
  - Pulmonary arterial hypertension [None]
